FAERS Safety Report 4500911-2 (Version None)
Quarter: 2004Q4

REPORT INFORMATION
  Report Type: 
  Country: None (occurrence: None)
  Receive Date: 20041115
  Receipt Date: 20030616
  Transmission Date: 20050328
  Serious: Yes (Hospitalization)
  Sender: FDA-Public Use
  Company Number: BR-ROCHE-340137

PATIENT
  Age: 29 Year
  Sex: Female
  Weight: 57 kg

DRUGS (25)
  1. DACLIZUMAB [Suspect]
     Route: 042
     Dates: start: 20030502, end: 20030503
  2. DACLIZUMAB [Suspect]
     Route: 042
     Dates: start: 20030519, end: 20030626
  3. MYCOPHENOLATE MOFETIL [Suspect]
     Dosage: TAKEN EVERY 12 HOURS (= BID).
     Route: 048
     Dates: start: 20030502
  4. MYCOPHENOLATE MOFETIL [Suspect]
     Route: 048
     Dates: start: 20030615
  5. MYCOPHENOLATE MOFETIL [Suspect]
     Route: 048
     Dates: start: 20030722
  6. MYCOPHENOLATE MOFETIL [Suspect]
     Route: 048
     Dates: start: 20031120
  7. MYCOPHENOLATE MOFETIL [Suspect]
     Route: 048
     Dates: start: 20040202, end: 20040203
  8. TACROLIMUS [Suspect]
     Dosage: TAKEN EVERY 12 HOURS (= BID)
     Route: 048
     Dates: start: 20030502
  9. TACROLIMUS [Suspect]
     Route: 048
  10. TACROLIMUS [Suspect]
     Dosage: 4 + 3 MG
     Route: 048
     Dates: start: 20030512
  11. TACROLIMUS [Suspect]
     Route: 048
     Dates: start: 20030602
  12. TACROLIMUS [Suspect]
     Route: 048
     Dates: start: 20030722
  13. TACROLIMUS [Suspect]
     Route: 048
     Dates: start: 20030924
  14. TACROLIMUS [Suspect]
     Dosage: 4 + 3 MG
     Route: 048
     Dates: start: 20031105
  15. TACROLIMUS [Suspect]
     Route: 048
     Dates: start: 20040414
  16. TACROLIMUS [Suspect]
     Dosage: 5 + 4 MG.
     Route: 048
     Dates: start: 20040514
  17. PREDNISONE [Suspect]
     Route: 048
  18. PREDNISONE [Suspect]
     Dosage: FREQUENCY ^MID^
     Route: 048
     Dates: start: 20030507
  19. PREDNISONE [Suspect]
     Dosage: FREQUENCY ^MID^
     Route: 048
     Dates: start: 20030519
  20. PREDNISONE [Suspect]
     Dosage: FREQUENCY ^MID^
     Route: 048
     Dates: start: 20030602
  21. PREDNISONE [Suspect]
     Dosage: FREQUENCY ^MID^
     Route: 048
     Dates: start: 20030722
  22. PREDNISONE [Suspect]
     Dosage: FREQUENCY ^MID^
     Route: 048
     Dates: start: 20030820
  23. PREDNISONE [Suspect]
     Route: 048
     Dates: start: 20040924
  24. RANITIDINE [Concomitant]
     Route: 048
     Dates: start: 20030502, end: 20040109
  25. ACYCLOVIR [Concomitant]
     Route: 048
     Dates: start: 20040827, end: 20040930

REACTIONS (5)
  - DIARRHOEA [None]
  - DRUG INEFFECTIVE [None]
  - HERPES SIMPLEX [None]
  - HERPES ZOSTER [None]
  - VOMITING [None]
